FAERS Safety Report 8586283-5 (Version None)
Quarter: 2012Q3

REPORT INFORMATION
  Report Type: 
  Country: None (occurrence: None)
  Receive Date: 20120810
  Receipt Date: 20110621
  Transmission Date: 20120928
  Serious: Yes (Death)
  Sender: FDA-Public Use
  Company Number: US-ROCHE-1098702

PATIENT
  Sex: Male

DRUGS (4)
  1. ACTIVASE [Suspect]
     Indication: EMBOLISM
  2. ACTIVASE [Suspect]
     Indication: MEDICAL DEVICE COMPLICATION
  3. ACTIVASE [Suspect]
     Indication: GRAFT COMPLICATION
  4. ACTIVASE [Suspect]
     Indication: IMPLANT SITE REACTION

REACTIONS (1)
  - DEATH [None]
